FAERS Safety Report 6258882-7 (Version None)
Quarter: 2009Q3

REPORT INFORMATION
  Report Type: 
  Country: None (occurrence: None)
  Receive Date: 20090702
  Receipt Date: 20090617
  Transmission Date: 20100115
  Serious: Yes (Other)
  Sender: FDA-Public Use
  Company Number: ADE2009-0683

PATIENT
  Age: 85 Year
  Sex: Female
  Weight: 79.3795 kg

DRUGS (6)
  1. METOPROLOL [Suspect]
     Dates: end: 20090601
  2. LATANOPROST 0.005% (XALATAN, PFIZER) [Suspect]
     Indication: GLAUCOMA
     Dosage: 1 DROP EACH EYE-QD-TOP
     Route: 061
     Dates: start: 20090301
  3. LIPITOR [Concomitant]
  4. VICODIN [Concomitant]
  5. UNKNOWN THYROID MEDICATION [Concomitant]
  6. VITAMIN [Concomitant]

REACTIONS (5)
  - ASTHMA [None]
  - BREATH SOUNDS ABNORMAL [None]
  - DEVICE MALFUNCTION [None]
  - DRUG INTERACTION [None]
  - WHEEZING [None]
